FAERS Safety Report 5050785-9 (Version None)
Quarter: 2006Q3

REPORT INFORMATION
  Report Type: 
  Country: None (occurrence: None)
  Receive Date: 20060707
  Receipt Date: 20060703
  Transmission Date: 20061208
  Serious: Yes (Hospitalization, Other)
  Sender: FDA-Public Use
  Company Number: HQWYE356023JUN06

PATIENT
  Age: 81 Year
  Sex: Female

DRUGS (7)
  1. CORDARONE [Suspect]
     Dosage: 200 MG 1X PER 1 DAY
     Route: 048
  2. EUPRESSYL (URAPIDIL) [Concomitant]
  3. LEXOMIL (URAPIDIL) [Concomitant]
  4. ACETAMINOPHEN W/ PROPOXYPHENE HCL [Concomitant]
  5. ALDACTONE [Suspect]
     Dosage: 25 MG 1X PER 1 DAY
     Route: 048
     Dates: start: 20060127, end: 20060527
  6. COAPROVEL (IRBESARTAN/HYDROCHLOROTHIAZIDE,) [Suspect]
     Dosage: 300 MG 1X PER 1 DAY
     Route: 048
     Dates: end: 20060527
  7. OMEPRAZOLE [Suspect]
     Dosage: 20 MG 1X PER 1 DAY
     Route: 048

REACTIONS (5)
  - CONFUSIONAL STATE [None]
  - DRUG INTERACTION [None]
  - HYPONATRAEMIA [None]
  - HYPOTENSION [None]
  - MALAISE [None]
